FAERS Safety Report 4636804-X (Version None)
Quarter: 2005Q2

REPORT INFORMATION
  Report Type: 
  Country: None (occurrence: None)
  Receive Date: 20050414
  Receipt Date: 20050329
  Transmission Date: 20051028
  Serious: Yes (Disabling)
  Sender: FDA-Public Use
  Company Number: ACO_0137_2005

PATIENT
  Age: 64 Year
  Sex: Male

DRUGS (1)
  1. SIRDALUD [Suspect]
     Indication: BACK PAIN

REACTIONS (5)
  - CONFUSIONAL STATE [None]
  - DYSPNOEA [None]
  - LOSS OF CONSCIOUSNESS [None]
  - QUADRIPARESIS [None]
  - RALES [None]
